FAERS Safety Report 10641065 (Version 1)
Quarter: 2014Q4

REPORT INFORMATION
  Report Type: Spontaneous
  Country: DE (occurrence: DE)
  Receive Date: 20141209
  Receipt Date: 20141209
  Transmission Date: 20150529
  Serious: Yes (Other)
  Sender: FDA-Public Use
  Company Number: DE-WATSON-2014-26103

PATIENT
  Sex: Male
  Weight: 3 kg

DRUGS (4)
  1. ALDACTONE [Concomitant]
     Active Substance: SPIRONOLACTONE
     Indication: HYPERTENSION
     Dosage: 25 MG, DAILY
     Route: 063
  2. METOPROLOL (UNKNOWN) [Suspect]
     Active Substance: METOPROLOL
     Dosage: 95 MG, DAILY
     Route: 063
     Dates: start: 20131103, end: 20140725
  3. METOPROLOL (UNKNOWN) [Suspect]
     Active Substance: METOPROLOL
     Indication: HYPERTENSION
     Dosage: 95 MG, DAILY
     Route: 064
     Dates: start: 20131103, end: 20140725
  4. CAPTOPRIL. [Concomitant]
     Active Substance: CAPTOPRIL
     Indication: HYPERTENSION
     Dosage: 5 MG, DAILY
     Route: 063

REACTIONS (3)
  - Bradycardia neonatal [Recovered/Resolved]
  - Foetal exposure during pregnancy [Recovered/Resolved]
  - Thrombocytopenia neonatal [Recovered/Resolved]
